FAERS Safety Report 19814781 (Version 1)
Quarter: 2021Q3

REPORT INFORMATION
  Report Type: Spontaneous
  Country: CN (occurrence: CN)
  Receive Date: 20210910
  Receipt Date: 20210910
  Transmission Date: 20211014
  Serious: Yes (Hospitalization)
  Sender: FDA-Public Use
  Company Number: CN-ASTRAZENECA-2021A715578

PATIENT
  Age: 65 Year
  Sex: Male

DRUGS (9)
  1. MULTIVITAMINS [Concomitant]
     Active Substance: VITAMINS
     Route: 065
  2. SERETIDE [Suspect]
     Active Substance: FLUTICASONE PROPIONATE\SALMETEROL XINAFOATE
     Indication: ASTHMA
     Dosage: UNKNOWN
     Route: 065
     Dates: start: 202104
  3. EPIDERMAL GROWTH FACTOR [Concomitant]
     Route: 065
  4. KANGFUXIN [Concomitant]
     Route: 065
  5. SYMBICORT [Suspect]
     Active Substance: BUDESONIDE\FORMOTEROL FUMARATE DIHYDRATE
     Dosage: 320/9 MCG, TWO TIMES A DAY
     Route: 055
  6. NYSFUNGIN [Concomitant]
     Route: 065
  7. PIPERACILLIN SODIUM [Concomitant]
     Active Substance: PIPERACILLIN SODIUM
     Route: 065
  8. OMALIZUMAB. [Concomitant]
     Active Substance: OMALIZUMAB
     Route: 065
  9. TAZOBACTAM [Concomitant]
     Active Substance: TAZOBACTAM
     Route: 065

REACTIONS (8)
  - Sinusitis [Unknown]
  - Nasal septum deviation [Unknown]
  - Rhinitis allergic [Unknown]
  - Oral candidiasis [Not Recovered/Not Resolved]
  - Asthma [Unknown]
  - Benign prostatic hyperplasia [Unknown]
  - Gallbladder polyp [Unknown]
  - Anaemia [Unknown]
